FAERS Safety Report 19588630 (Version 1)
Quarter: 2021Q3

REPORT INFORMATION
  Report Type: Spontaneous
  Country: TR (occurrence: TR)
  Receive Date: 20210721
  Receipt Date: 20210721
  Transmission Date: 20211014
  Serious: Yes (Other)
  Sender: FDA-Public Use
  Company Number: TR-AMGEN-TURSP2021107102

PATIENT
  Age: 4 Year
  Sex: Male

DRUGS (3)
  1. CYCLOSPORINE. [Concomitant]
     Active Substance: CYCLOSPORINE
     Dosage: 15 MILLIGRAM/KILOGRAM, QD (DAILY)
     Route: 048
  2. FILGRASTIM [Suspect]
     Active Substance: FILGRASTIM
     Indication: PROPHYLAXIS
     Dosage: UNK
     Route: 042
     Dates: start: 2020
  3. MYCOPHENOLATE MOFETIL. [Concomitant]
     Active Substance: MYCOPHENOLATE MOFETIL
     Dosage: 600 MILLIGRAM/SQ. METER, QD (DAILY)
     Route: 048
     Dates: start: 2020

REACTIONS (1)
  - Viral haemorrhagic cystitis [Recovered/Resolved]

NARRATIVE: CASE EVENT DATE: 202010
